FAERS Safety Report 26032049 (Version 1)
Quarter: 2025Q4

REPORT INFORMATION
  Report Type: Spontaneous
  Country: EU (occurrence: EU)
  Receive Date: 20251112
  Receipt Date: 20251112
  Transmission Date: 20260117
  Serious: Yes (Hospitalization, Other)
  Sender: AUROBINDO
  Company Number: EU-AFSSAPS-NT2025001093

PATIENT
  Age: 43 Year
  Sex: Male
  Weight: 99.5 kg

DRUGS (2)
  1. SPIRONOLACTONE [Suspect]
     Active Substance: SPIRONOLACTONE
     Indication: Adrenal adenoma
     Dosage: 100 MILLIGRAM, ONCE A DAY (50 MG X2/DAY)
     Route: 048
     Dates: start: 202505
  2. NITRENDIPINE [Suspect]
     Active Substance: NITRENDIPINE
     Indication: Hypertension
     Dosage: NR
     Route: 048
     Dates: start: 202507, end: 20250814

REACTIONS (2)
  - Hepatitis cholestatic [Not Recovered/Not Resolved]
  - Hepatic cytolysis [Not Recovered/Not Resolved]

NARRATIVE: CASE EVENT DATE: 20250811
